FAERS Safety Report 6506564-6 (Version None)
Quarter: 2009Q4

REPORT INFORMATION
  Report Type: 
  Country: None (occurrence: None)
  Receive Date: 20091221
  Receipt Date: 20091210
  Transmission Date: 20100525
  Serious: No
  Sender: FDA-Public Use
  Company Number: KR-JNJFOC-20091203816

PATIENT
  Age: 43 Year
  Sex: Female

DRUGS (4)
  1. DURAGESIC-100 [Suspect]
     Indication: PAIN IN EXTREMITY
     Route: 062
  2. DURAGESIC-100 [Suspect]
     Route: 062
  3. DURAGESIC-100 [Suspect]
     Indication: BACK PAIN
     Route: 062
  4. DURAGESIC-100 [Suspect]
     Route: 062

REACTIONS (5)
  - ASTHENIA [None]
  - COLD SWEAT [None]
  - FEAR OF FALLING [None]
  - NAUSEA [None]
  - TREATMENT NONCOMPLIANCE [None]
